FAERS Safety Report 25159558 (Version 1)
Quarter: 2025Q2

REPORT INFORMATION
  Report Type: Spontaneous
  Country: AU (occurrence: AU)
  Receive Date: 20250404
  Receipt Date: 20250404
  Transmission Date: 20250717
  Serious: Yes (Other)
  Sender: ROCHE
  Company Number: AU-ROCHE-10000242445

PATIENT
  Age: 58 Year
  Sex: Female

DRUGS (11)
  1. GLOFITAMAB [Suspect]
     Active Substance: GLOFITAMAB
     Indication: Follicular lymphoma
     Route: 065
  2. GLOFITAMAB [Suspect]
     Active Substance: GLOFITAMAB
     Route: 065
  3. GLOFITAMAB [Suspect]
     Active Substance: GLOFITAMAB
     Route: 050
  4. OBINUTUZUMAB [Concomitant]
     Active Substance: OBINUTUZUMAB
     Route: 065
  5. RITUXIMAB [Concomitant]
     Active Substance: RITUXIMAB
  6. CYCLOPHOSPHAMIDE [Concomitant]
     Active Substance: CYCLOPHOSPHAMIDE
  7. DOXORUBICIN [Concomitant]
     Active Substance: DOXORUBICIN
  8. VINCRISTINE [Concomitant]
     Active Substance: VINCRISTINE
  9. PREDNISONE [Concomitant]
     Active Substance: PREDNISONE
     Route: 048
  10. FLUDARABINE [Concomitant]
     Active Substance: FLUDARABINE PHOSPHATE
  11. BUDESONIDE [Concomitant]
     Active Substance: BUDESONIDE
     Route: 048

REACTIONS (1)
  - Enterocolitis [Unknown]
